FAERS Safety Report 14594852 (Version 1)
Quarter: 2018Q1

REPORT INFORMATION
  Report Type: Spontaneous
  Country: US (occurrence: US)
  Receive Date: 20180302
  Receipt Date: 20180302
  Transmission Date: 20180509
  Serious: No
  Sender: FDA-Public Use
  Company Number: US-AKORN PHARMACEUTICALS-2017AKN00512

PATIENT
  Age: 41 Year
  Sex: Female

DRUGS (1)
  1. MYORISAN [Suspect]
     Active Substance: ISOTRETINOIN
     Dosage: UNK
     Dates: start: 20170221

REACTIONS (3)
  - Malaise [Unknown]
  - Drug effect incomplete [Unknown]
  - Food poisoning [Unknown]

NARRATIVE: CASE EVENT DATE: 2017
